FAERS Safety Report 7931984-2 (Version None)
Quarter: 2011Q4

REPORT INFORMATION
  Report Type: 
  Country: None (occurrence: None)
  Receive Date: 20111121
  Receipt Date: 20111107
  Transmission Date: 20120403
  Serious: Yes (Other)
  Sender: FDA-Public Use
  Company Number: BR-ROCHE-691919

PATIENT
  Age: 30 Year
  Sex: Male

DRUGS (6)
  1. RIBAVIRIN [Suspect]
     Indication: HEPATITIS C
     Dosage: FREQUENCY 4 TABLETS/DAY
     Route: 065
  2. PEGASYS [Suspect]
     Indication: HEPATITIS C
     Dosage: TAKEN EVERY FRIDAY
     Route: 065
  3. OMEPRAZOLE [Concomitant]
  4. ACETAMINOPHEN [Concomitant]
     Indication: MALAISE
  5. GRANULOKINE [Concomitant]
     Dosage: ON MONDAYS AND IT IS APPLIED BY THE REPORTER
  6. FOLIC ACID [Concomitant]
     Dosage: FREQUENCY 2 TABS/DAY

REACTIONS (17)
  - DECREASED APPETITE [None]
  - WEIGHT DECREASED [None]
  - WHITE BLOOD CELL COUNT DECREASED [None]
  - AFFECT LABILITY [None]
  - RASH MACULAR [None]
  - DIARRHOEA [None]
  - COUGH [None]
  - DRUG EFFECT DECREASED [None]
  - ALOPECIA [None]
  - PRURITUS [None]
  - HEADACHE [None]
  - IRRITABILITY [None]
  - PAIN [None]
  - DYSGEUSIA [None]
  - HYPOAESTHESIA ORAL [None]
  - DRUG ADMINISTERED AT INAPPROPRIATE SITE [None]
  - NAUSEA [None]
